FAERS Safety Report 5816461-7 (Version None)
Quarter: 2008Q3

REPORT INFORMATION
  Report Type: 
  Country: None (occurrence: None)
  Receive Date: 20080721
  Receipt Date: 20080716
  Transmission Date: 20090109
  Serious: Yes (Hospitalization, Other)
  Sender: FDA-Public Use
  Company Number: FR-BRISTOL-MYERS SQUIBB COMPANY-14267637

PATIENT
  Age: 95 Year
  Sex: Female

DRUGS (6)
  1. APROVEL FILM-COATED TABS 300 MG [Suspect]
     Indication: HYPERTENSION
     Route: 048
  2. DIGITALINE NATIVELLE [Interacting]
     Indication: ATRIAL FIBRILLATION
     Dosage: GIVEN TILL 20-MAR-2008  STARTED AGAIN AT 0.125 ?G ON MONDAY, WEDNESDAY AND FRIDAY.
     Route: 048
  3. FUROSEMIDE [Concomitant]
     Indication: CARDIAC FAILURE
     Route: 048
  4. NORSET [Concomitant]
     Indication: DEPRESSION
     Route: 048
  5. TOPALGIC LP [Concomitant]
     Indication: ARTHRALGIA
  6. SOLUPRED [Concomitant]
     Indication: TEMPORAL ARTERITIS
     Route: 048

REACTIONS (11)
  - CARDIAC FAILURE [None]
  - CONFUSIONAL STATE [None]
  - DRUG INTERACTION [None]
  - EXTRASYSTOLES [None]
  - FALL [None]
  - GENERAL PHYSICAL HEALTH DETERIORATION [None]
  - LUNG INFECTION [None]
  - OVERDOSE [None]
  - RENAL IMPAIRMENT [None]
  - URINARY TRACT INFECTION [None]
  - WEIGHT DECREASED [None]
